FAERS Safety Report 8823849 (Version 1)
Quarter: 2012Q4

REPORT INFORMATION
  Report Type: 
  Country: US (occurrence: US)
  Receive Date: 20121003
  Receipt Date: 20121003
  Transmission Date: 20130627
  Serious: No
  Sender: FDA-Public Use
  Company Number: US-009507513-1209USA010887

PATIENT
  Age: 25 Year
  Sex: Female

DRUGS (1)
  1. NUVARING [Suspect]
     Indication: CONTRACEPTION
     Dosage: 1 DF, qm
     Route: 067
     Dates: start: 201201, end: 201209

REACTIONS (6)
  - Palpitations [Recovering/Resolving]
  - Anxiety [Recovering/Resolving]
  - Pain in extremity [Recovering/Resolving]
  - Migraine [Recovering/Resolving]
  - Vomiting [Recovering/Resolving]
  - Mood swings [Recovering/Resolving]
